FAERS Safety Report 5748131-8 (Version None)
Quarter: 2008Q2

REPORT INFORMATION
  Report Type: 
  Country: None (occurrence: None)
  Receive Date: 20080523
  Receipt Date: 20080514
  Transmission Date: 20081010
  Serious: Yes (Other)
  Sender: FDA-Public Use
  Company Number: AU-BOEHRINGER INGELHEIM GMBH, GERMANY-2008-BP-07600AU

PATIENT
  Age: 95 Year
  Sex: Male

DRUGS (1)
  1. MOBIC [Suspect]
     Indication: BACK PAIN
     Route: 048

REACTIONS (2)
  - LIVER FUNCTION TEST ABNORMAL [None]
  - PANCREATIC CARCINOMA [None]
